FAERS Safety Report 10210295 (Version 2)
Quarter: 2015Q2

REPORT INFORMATION
  Report Type: Spontaneous
  Country: US (occurrence: US)
  Receive Date: 20140602
  Receipt Date: 20150528
  Transmission Date: 20150821
  Serious: Yes (Hospitalization, Congenital Anomaly, Other)
  Sender: FDA-Public Use
  Company Number: US-ELI_LILLY_AND_COMPANY-US201405008606

PATIENT

DRUGS (8)
  1. ATROVENT [Concomitant]
     Active Substance: IPRATROPIUM BROMIDE
     Route: 064
  2. PEPCID                             /00305201/ [Concomitant]
     Active Substance: ALUMINUM HYDROXIDE\MAGNESIUM CARBONATE
     Route: 064
  3. PROZAC [Suspect]
     Active Substance: FLUOXETINE HYDROCHLORIDE
     Indication: ANXIETY
  4. AZMACORT [Concomitant]
     Active Substance: TRIAMCINOLONE ACETONIDE
     Route: 064
  5. MELLARIL                           /00034201/ [Concomitant]
     Route: 064
  6. TRIMOX                             /00249602/ [Concomitant]
     Route: 064
  7. PROZAC [Suspect]
     Active Substance: FLUOXETINE HYDROCHLORIDE
     Indication: DEPRESSION
     Dosage: UNK, UNKNOWN
     Route: 064
     Dates: start: 19981227
  8. PRENAT                             /07714001/ [Concomitant]
     Route: 064

REACTIONS (9)
  - Patent ductus arteriosus [Recovered/Resolved]
  - Autism spectrum disorder [Unknown]
  - Mitral valve incompetence [Recovering/Resolving]
  - Foetal exposure during pregnancy [Recovered/Resolved]
  - Reactive attachment disorder of infancy or early childhood [Unknown]
  - Obsessive-compulsive disorder [Unknown]
  - Attention deficit/hyperactivity disorder [Unknown]
  - Cognitive disorder [Unknown]
  - Left ventricular hypertrophy [Recovered/Resolved]
